FAERS Safety Report 24767774 (Version 2)
Quarter: 2024Q4

REPORT INFORMATION
  Report Type: Spontaneous
  Country: ES (occurrence: ES)
  Receive Date: 20241223
  Receipt Date: 20241227
  Transmission Date: 20250114
  Serious: No
  Sender: PFIZER
  Company Number: ES-PFIZER INC-202400325660

PATIENT
  Age: 6 Year
  Sex: Female
  Weight: 16.4 kg

DRUGS (1)
  1. ZITHROMAX [Suspect]
     Active Substance: AZITHROMYCIN DIHYDRATE
     Dosage: 4 ML, 1X/DAY

REACTIONS (2)
  - Off label use [Unknown]
  - Product use issue [Unknown]
